FAERS Safety Report 7607644-4 (Version None)
Quarter: 2011Q3

REPORT INFORMATION
  Report Type: 
  Country: None (occurrence: None)
  Receive Date: 20110713
  Receipt Date: 20110421
  Transmission Date: 20111222
  Serious: Yes (Hospitalization)
  Sender: FDA-Public Use
  Company Number: PHHO2010RO13517

PATIENT
  Sex: Female
  Weight: 18 kg

DRUGS (9)
  1. AZITHROMYCIN [Concomitant]
     Dosage: UNK
  2. FLUIMUCIL [Concomitant]
     Dosage: 1 VIAL BID
     Dates: start: 20090603
  3. VENTOLIN HFA [Concomitant]
     Dosage: 2.5 MG, BID
     Dates: start: 20100129
  4. TOBI [Suspect]
     Dosage: 112 MG, BID
     Dates: start: 20101008
  5. ALBUTEROL SULFATE AUTOHALER [Concomitant]
     Indication: BRONCHIAL DISORDER
     Dosage: UNK
  6. ACETYLCYSTEINE [Concomitant]
     Dosage: UNK
  7. CREON [Concomitant]
     Dosage: UNK
  8. PULMOZYME [Concomitant]
     Dosage: UNK
  9. PULMOZYME [Concomitant]
     Dosage: 25 MG, UNK
     Dates: start: 20060603

REACTIONS (11)
  - LUNG INFECTION [None]
  - LEUKOCYTOSIS [None]
  - PNEUMONIA [None]
  - COUGH [None]
  - PYREXIA [None]
  - RED BLOOD CELL SEDIMENTATION RATE INCREASED [None]
  - DISEASE PROGRESSION [None]
  - BLOOD FIBRINOGEN INCREASED [None]
  - PULMONARY FUNCTION TEST DECREASED [None]
  - INCREASED UPPER AIRWAY SECRETION [None]
  - PSEUDOMONAS INFECTION [None]
